FAERS Safety Report 5411036-6 (Version None)
Quarter: 2007Q3

REPORT INFORMATION
  Report Type: 
  Country: None (occurrence: None)
  Receive Date: 20070810
  Receipt Date: 20070731
  Transmission Date: 20080115
  Serious: Yes (Other)
  Sender: FDA-Public Use
  Company Number: US-JNJFOC-20070501556

PATIENT
  Sex: Male
  Weight: 84.37 kg

DRUGS (2)
  1. DURAGESIC-100 [Suspect]
     Route: 062
  2. DURAGESIC-100 [Suspect]
     Indication: PAIN
     Route: 062

REACTIONS (9)
  - ARTHRALGIA [None]
  - DRUG EFFECT DECREASED [None]
  - EXPIRED DRUG ADMINISTERED [None]
  - FEELING HOT [None]
  - INCORRECT DRUG ADMINISTRATION RATE [None]
  - PAIN [None]
  - PERIPHERAL NERVE OPERATION [None]
  - PSYCHOMOTOR HYPERACTIVITY [None]
  - SINUS CONGESTION [None]
